FAERS Safety Report 6039392-9 (Version None)
Quarter: 2009Q1

REPORT INFORMATION
  Report Type: 
  Country: None (occurrence: None)
  Receive Date: 20090115
  Receipt Date: 20090109
  Transmission Date: 20090719
  Serious: Yes (Hospitalization)
  Sender: FDA-Public Use
  Company Number: US-MERCK-0901USA01130

PATIENT
  Age: 37 Year
  Sex: Female

DRUGS (11)
  1. JANUVIA [Suspect]
     Indication: TYPE 2 DIABETES MELLITUS
     Route: 048
     Dates: start: 20081020, end: 20081215
  2. JANUVIA [Suspect]
     Route: 048
     Dates: start: 20081216, end: 20081224
  3. JANUVIA [Suspect]
     Route: 048
     Dates: start: 20081224
  4. NEXIUM [Concomitant]
     Route: 065
  5. BACLOFEN [Concomitant]
     Route: 065
  6. LUNESTA [Concomitant]
     Route: 065
  7. REQUIP [Concomitant]
     Route: 065
  8. OVCON-50 [Concomitant]
     Route: 065
  9. FLOMAX (MORNIFLUMATE) [Concomitant]
     Route: 065
  10. MILLET [Concomitant]
     Route: 065
  11. COPAXONE [Concomitant]
     Route: 065

REACTIONS (4)
  - BLOOD GLUCOSE INCREASED [None]
  - DRUG INEFFECTIVE [None]
  - OEDEMA PERIPHERAL [None]
  - PAIN IN EXTREMITY [None]
